FAERS Safety Report 18235777 (Version 3)
Quarter: 2021Q1

REPORT INFORMATION
  Report Type: Report from Study
  Country: US (occurrence: US)
  Receive Date: 20200905
  Receipt Date: 20210326
  Transmission Date: 20210419
  Serious: Yes (Hospitalization, Other)
  Sender: FDA-Public Use
  Company Number: NVSC2020US241930

PATIENT
  Sex: Male

DRUGS (2)
  1. COSENTYX [Suspect]
     Active Substance: SECUKINUMAB
     Dosage: 300 MG, QMO
     Route: 058
     Dates: start: 20190730
  2. COSENTYX [Suspect]
     Active Substance: SECUKINUMAB
     Indication: PSORIASIS
     Dosage: 300 MG, QMO
     Route: 058

REACTIONS (8)
  - Psoriatic arthropathy [Unknown]
  - Hip fracture [Recovering/Resolving]
  - Gait disturbance [Unknown]
  - Posture abnormal [Unknown]
  - Skin exfoliation [Unknown]
  - Psoriasis [Unknown]
  - Fall [Unknown]
  - COVID-19 [Unknown]
